FAERS Safety Report 11309324 (Version 1)
Quarter: 2015Q3

REPORT INFORMATION
  Report Type: Report from Study
  Country: DE (occurrence: DE)
  Receive Date: 20150724
  Receipt Date: 20150724
  Transmission Date: 20151125
  Serious: Yes (Hospitalization)
  Sender: FDA-Public Use
  Company Number: DE-ABBVIE-15K-062-1428370-00

PATIENT
  Age: 33 Year
  Sex: Male
  Weight: 97 kg

DRUGS (4)
  1. HUMIRA [Suspect]
     Active Substance: ADALIMUMAB
     Indication: CROHN^S DISEASE
     Route: 058
     Dates: start: 2009, end: 201309
  2. HUMIRA [Suspect]
     Active Substance: ADALIMUMAB
     Route: 058
     Dates: start: 20141002, end: 20141002
  3. HUMIRA [Suspect]
     Active Substance: ADALIMUMAB
     Route: 058
  4. HUMIRA [Suspect]
     Active Substance: ADALIMUMAB
     Route: 058
     Dates: start: 20141016, end: 20141016

REACTIONS (19)
  - Crohn^s disease [Recovered/Resolved]
  - Blood fibrinogen increased [Unknown]
  - Hepatic steatosis [Unknown]
  - Foot deformity [Unknown]
  - Painful defaecation [Unknown]
  - Gastrointestinal motility disorder [Unknown]
  - Gastrointestinal oedema [Unknown]
  - Intestinal ulcer [Unknown]
  - Mean cell haemoglobin decreased [Unknown]
  - Crohn^s disease [Recovered/Resolved]
  - Haemoglobin decreased [Unknown]
  - Haematochezia [Unknown]
  - Blood lactic acid decreased [Unknown]
  - Mean cell volume decreased [Unknown]
  - Peroneal nerve palsy [Unknown]
  - Transferrin saturation decreased [Unknown]
  - Central obesity [Unknown]
  - Blood lactate dehydrogenase increased [Unknown]
  - Mucous stools [Unknown]

NARRATIVE: CASE EVENT DATE: 201409
